FAERS Safety Report 5656095-0 (Version None)
Quarter: 2008Q1

REPORT INFORMATION
  Report Type: 
  Country: None (occurrence: None)
  Receive Date: 20080305
  Receipt Date: 20080229
  Transmission Date: 20080703
  Serious: Yes (Other)
  Sender: FDA-Public Use
  Company Number: 2008SP001425

PATIENT
  Age: 52 Year
  Sex: Male

DRUGS (4)
  1. PEG-INTRON [Suspect]
     Indication: HEPATITIS C
     Dosage: SC; SC
     Route: 058
     Dates: start: 20070101, end: 20070101
  2. PEG-INTRON [Suspect]
     Indication: HEPATITIS C
     Dosage: SC; SC
     Route: 058
     Dates: start: 20080108
  3. RIBAVIRIN [Suspect]
     Indication: HEPATITIS C
     Dosage: PO; PO
     Route: 048
     Dates: start: 20070101, end: 20070101
  4. RIBAVIRIN [Suspect]
     Indication: HEPATITIS C
     Dosage: PO; PO
     Route: 048
     Dates: start: 20080108

REACTIONS (8)
  - ADVERSE DRUG REACTION [None]
  - ANAEMIA [None]
  - ANOREXIA [None]
  - ASCITES [None]
  - INFLUENZA [None]
  - INSOMNIA [None]
  - JAUNDICE [None]
  - PYREXIA [None]
